FAERS Safety Report 12953505 (Version 2)
Quarter: 2017Q1

REPORT INFORMATION
  Report Type: Spontaneous
  Country: US (occurrence: US)
  Receive Date: 20161117
  Receipt Date: 20170113
  Transmission Date: 20170428
  Serious: Yes (Other)
  Sender: FDA-Public Use
  Company Number: US-ALLERGAN-1676232US

PATIENT
  Age: 73 Year
  Sex: Male

DRUGS (1)
  1. COMBIGAN [Suspect]
     Active Substance: BRIMONIDINE TARTRATE\TIMOLOL MALEATE
     Indication: GLAUCOMA
     Dosage: 2 GTT, BID
     Route: 047

REACTIONS (1)
  - Glaucoma [Unknown]

NARRATIVE: CASE EVENT DATE: 201612
